APPROVED DRUG PRODUCT: REVIA
Active Ingredient: NALTREXONE HYDROCHLORIDE
Strength: 50MG
Dosage Form/Route: TABLET;ORAL
Application: N018932 | Product #001
Applicant: TEVA WOMENS HEALTH INC
Approved: Nov 20, 1984 | RLD: Yes | RS: No | Type: DISCN